FAERS Safety Report 7389018-7 (Version None)
Quarter: 2011Q2

REPORT INFORMATION
  Report Type: 
  Country: None (occurrence: None)
  Receive Date: 20110401
  Receipt Date: 20110330
  Transmission Date: 20111010
  Serious: Yes (Other)
  Sender: FDA-Public Use
  Company Number: US-PFIZER INC-2011072147

PATIENT
  Sex: Female
  Weight: 114 kg

DRUGS (14)
  1. ENALAPRIL [Concomitant]
     Indication: HYPERTENSION
     Dosage: 10 MG, 1X/DAY
  2. FUROSEMIDE [Concomitant]
     Indication: SWELLING
     Dosage: 40 MG, 1X/DAY
  3. MULTIVITAMIN [Concomitant]
     Dosage: UNK
  4. KLOR-CON [Concomitant]
     Indication: DYSPEPSIA
     Dosage: 10 MEQ, 1X/DAY
  5. TRAZODONE [Concomitant]
     Indication: INSOMNIA
     Dosage: 200 MG, 1X/DAY
  6. GEODON [Concomitant]
     Indication: HALLUCINATION
     Dosage: 60 MG, 1X/DAY
  7. SIMVASTATIN [Concomitant]
     Indication: BLOOD CHOLESTEROL INCREASED
     Dosage: 40 MG, 1X/DAY
  8. CALCIUM [Concomitant]
     Dosage: UNK
  9. OMEPRAZOLE [Concomitant]
     Indication: DYSPEPSIA
     Dosage: 20 MG, 2X/DAY
  10. CLONAZEPAM [Concomitant]
     Indication: ANXIETY
     Dosage: 1 MG, 2X/DAY
  11. BENZTROPINE MESYLATE [Concomitant]
     Indication: JAW DISORDER
     Dosage: 2 MG, 2X/DAY
  12. GLYBURIDE [Concomitant]
     Indication: DIABETES MELLITUS
     Dosage: 2.5 MG, 1X/DAY
  13. METOCLOPRAMIDE [Concomitant]
     Indication: DYSPEPSIA
     Dosage: 10 MG, 3X/DAY
  14. CHANTIX [Suspect]
     Indication: SMOKING CESSATION THERAPY
     Dosage: 1 MG, 2X/DAY
     Route: 048
     Dates: start: 20110301

REACTIONS (3)
  - EAR DISORDER [None]
  - CONFUSIONAL STATE [None]
  - DEAFNESS [None]
